FAERS Safety Report 8543637-0 (Version None)
Quarter: 2012Q3

REPORT INFORMATION
  Report Type: 
  Country: None (occurrence: None)
  Receive Date: 20120727
  Receipt Date: 20120723
  Transmission Date: 20120928
  Serious: Yes (Life-Threatening)
  Sender: FDA-Public Use
  Company Number: CA-JNJFOC-20120711695

PATIENT
  Sex: Female
  Weight: 97.51 kg

DRUGS (10)
  1. FLONASE [Concomitant]
     Indication: RHINITIS ALLERGIC
     Route: 065
  2. BETAMETHASONE VALERATE [Suspect]
     Indication: PRODUCT USED FOR UNKNOWN INDICATION
     Dosage: BETADERM
     Route: 065
  3. TYLENOL W/ CODEINE NO. 3 [Suspect]
     Indication: OSTEOARTHRITIS
     Route: 048
     Dates: start: 20110328, end: 20120402
  4. MISOPROSTOL/DICLOFENAC [Suspect]
     Indication: MUSCULOSKELETAL PAIN
     Dosage: ARTHROTEC
     Route: 048
     Dates: start: 20110729, end: 20120507
  5. SEROQUEL [Suspect]
     Indication: DEPRESSION
     Route: 048
  6. ELOCON [Suspect]
     Indication: PRODUCT USED FOR UNKNOWN INDICATION
     Route: 065
  7. MS CONTIN [Suspect]
     Indication: PRODUCT USED FOR UNKNOWN INDICATION
     Dosage: 90 MG EVERY MORNING AND 120MG AT BED TIME
     Route: 065
  8. LYRICA [Suspect]
     Indication: PAIN
     Route: 048
  9. VENLAFAXINE [Suspect]
     Indication: DEPRESSION
     Dosage: EFEXOR XR
     Route: 048
  10. SIMVASTATIN [Suspect]
     Indication: PAIN
     Route: 048

REACTIONS (2)
  - DRUG-INDUCED LIVER INJURY [None]
  - LIVER FUNCTION TEST ABNORMAL [None]
